FAERS Safety Report 5962969-3 (Version None)
Quarter: 2008Q4

REPORT INFORMATION
  Report Type: 
  Country: None (occurrence: None)
  Receive Date: 20081124
  Receipt Date: 20081118
  Transmission Date: 20090506
  Serious: Yes (Other)
  Sender: FDA-Public Use
  Company Number: US-ASTRAZENECA-2008UW17514

PATIENT
  Age: 79 Year
  Sex: Female
  Weight: 75.7 kg

DRUGS (8)
  1. ARIMIDEX [Suspect]
     Indication: BREAST CANCER
     Route: 048
     Dates: start: 20050601, end: 20070921
  2. CELEBREX [Concomitant]
  3. CELEBREX [Concomitant]
  4. GABAPENTIN [Concomitant]
  5. GABAPENTIN [Concomitant]
  6. TOPROL-XL [Concomitant]
     Route: 048
  7. LASIX [Concomitant]
  8. DYAZIDE [Concomitant]

REACTIONS (13)
  - ARTHRITIS [None]
  - BACK PAIN [None]
  - BLOOD GLUCOSE INCREASED [None]
  - BLOOD POTASSIUM DECREASED [None]
  - BLOOD SODIUM DECREASED [None]
  - BREAST TENDERNESS [None]
  - CHEST PAIN [None]
  - DYSPNOEA EXERTIONAL [None]
  - HOT FLUSH [None]
  - KNEE ARTHROPLASTY [None]
  - NEUROPATHY PERIPHERAL [None]
  - OEDEMA PERIPHERAL [None]
  - PAIN IN EXTREMITY [None]
